FAERS Safety Report 7130899-X (Version None)
Quarter: 2010Q4

REPORT INFORMATION
  Report Type: 
  Country: None (occurrence: None)
  Receive Date: 20101201
  Receipt Date: 20101124
  Transmission Date: 20110411
  Serious: Yes (Hospitalization, Other)
  Sender: FDA-Public Use
  Company Number: FR-ABBOTT-10P-056-0687945-00

PATIENT
  Age: 26 Year
  Sex: Female

DRUGS (5)
  1. DEPAKENE [Suspect]
     Indication: EPILEPSY
     Dates: end: 20100501
  2. URBANYL [Suspect]
     Indication: EPILEPSY
     Route: 048
     Dates: end: 20100501
  3. KEPPRA [Suspect]
     Indication: EPILEPSY
     Dates: end: 20100501
  4. DONORMYL [Suspect]
     Indication: DRUG TOXICITY
     Dosage: ONCE
     Route: 048
     Dates: start: 20100522, end: 20100522
  5. DONORMYL [Suspect]

REACTIONS (5)
  - DRUG EXPOSURE DURING PREGNANCY [None]
  - DRUG TOXICITY [None]
  - INTENTIONAL DRUG MISUSE [None]
  - PREGNANCY [None]
  - REFUSAL OF TREATMENT BY PATIENT [None]
